FAERS Safety Report 25690641 (Version 1)
Quarter: 2025Q3

REPORT INFORMATION
  Report Type: Spontaneous
  Country: US (occurrence: None)
  Receive Date: 20250816
  Receipt Date: 20250816
  Transmission Date: 20251021
  Serious: No
  Sender: FDA-CTU
  Company Number: None

PATIENT
  Age: 43 Year

DRUGS (1)
  1. PAXLOVID [Suspect]
     Active Substance: NIRMATRELVIR\RITONAVIR
     Indication: COVID-19
     Dosage: OTHER QUANTITY : 3 DOSE PACK;?FREQUENCY : TWICE A DAY;?
     Route: 048

REACTIONS (3)
  - Dysgeusia [None]
  - Dry mouth [None]
  - Nausea [None]

NARRATIVE: CASE EVENT DATE: 20250813
